FAERS Safety Report 10155174 (Version 2)
Quarter: 2014Q2

REPORT INFORMATION
  Report Type: Spontaneous
  Country: US (occurrence: US)
  Receive Date: 20140506
  Receipt Date: 20140509
  Transmission Date: 20141212
  Serious: Yes (Hospitalization, Other)
  Sender: FDA-Public Use
  Company Number: US-BAXTER-2014BAX021294

PATIENT
  Sex: Female

DRUGS (4)
  1. DIANEAL LOW CALCIUM [Suspect]
     Indication: PERITONEAL DIALYSIS
     Route: 033
     Dates: start: 201205
  2. DIANEAL LOW CALCIUM [Suspect]
     Indication: PERITONEAL DIALYSIS
     Route: 033
     Dates: start: 201205
  3. DIANEAL LOW CALCIUM (ULTRABAG) [Suspect]
     Indication: PERITONEAL DIALYSIS
     Route: 033
     Dates: start: 201205
  4. KEPPRA [Concomitant]
     Indication: CONVULSION

REACTIONS (11)
  - Endotracheal intubation complication [Unknown]
  - Face injury [Unknown]
  - Vascular injury [Unknown]
  - Aspiration [Not Recovered/Not Resolved]
  - Pneumonia [Not Recovered/Not Resolved]
  - Clostridium difficile infection [Unknown]
  - Staphylococcal sepsis [Unknown]
  - Epistaxis [Unknown]
  - Blood pressure decreased [Not Recovered/Not Resolved]
  - International normalised ratio increased [Unknown]
  - Vomiting [Not Recovered/Not Resolved]
